FAERS Safety Report 8304148-0 (Version None)
Quarter: 2012Q2

REPORT INFORMATION
  Report Type: 
  Country: None (occurrence: None)
  Receive Date: 20120423
  Receipt Date: 20120411
  Transmission Date: 20120825
  Serious: No
  Sender: FDA-Public Use
  Company Number: US-JNJFOC-20120405619

PATIENT
  Sex: Female
  Weight: 84.37 kg

DRUGS (10)
  1. MIRALAX [Concomitant]
     Indication: RECTAL FISSURE
     Dates: start: 20030101
  2. SOMA [Concomitant]
     Indication: MUSCLE RELAXANT THERAPY
     Route: 048
     Dates: start: 20020101
  3. HYDROCHLOROTHIAZIDE [Concomitant]
     Indication: BLOOD PRESSURE
     Route: 048
     Dates: start: 20070101
  4. FENTANYL [Suspect]
     Indication: PAIN
     Route: 062
     Dates: start: 20100101
  5. KLONOPIN [Concomitant]
     Indication: PANIC ATTACK
     Route: 048
     Dates: start: 20050101
  6. HYDROCHLOROTHIAZIDE [Concomitant]
     Indication: OEDEMA
     Route: 048
     Dates: start: 20070101
  7. AMBIEN [Concomitant]
     Indication: SLEEP DISORDER
     Route: 048
     Dates: start: 20060101
  8. OXYCODONE HCL [Concomitant]
     Indication: PAIN
     Route: 048
     Dates: start: 20030101
  9. MIRALAX [Concomitant]
     Indication: CONSTIPATION
     Dates: start: 20030101
  10. PRILOSEC [Concomitant]
     Indication: GASTROOESOPHAGEAL REFLUX DISEASE
     Dates: start: 20020101

REACTIONS (1)
  - WRONG TECHNIQUE IN DRUG USAGE PROCESS [None]
